FAERS Safety Report 5905046-X (Version None)
Quarter: 2008Q4

REPORT INFORMATION
  Report Type: 
  Country: None (occurrence: None)
  Receive Date: 20081001
  Receipt Date: 20080924
  Transmission Date: 20090506
  Serious: Yes (Hospitalization)
  Sender: FDA-Public Use
  Company Number: NL-AMGEN-UK309656

PATIENT
  Sex: Female

DRUGS (4)
  1. NEULASTA [Suspect]
     Indication: DRUG USE FOR UNKNOWN INDICATION
     Dates: start: 20080613
  2. DOCETAXEL [Suspect]
     Dates: start: 20080613
  3. DOXORUBICIN HYDROCHLORIDE [Suspect]
     Dates: start: 20080613
  4. CYCLOPHOSPHAMIDE [Suspect]
     Dates: start: 20080613

REACTIONS (3)
  - EAR PAIN [None]
  - LYMPHADENOPATHY [None]
  - PYREXIA [None]
